FAERS Safety Report 5103929-4 (Version None)
Quarter: 2006Q3

REPORT INFORMATION
  Report Type: 
  Country: None (occurrence: None)
  Receive Date: 20060908
  Receipt Date: 20060828
  Transmission Date: 20061208
  Serious: Yes (Hospitalization)
  Sender: FDA-Public Use
  Company Number: 2006104863

PATIENT
  Age: 79 Year
  Sex: Male
  Weight: 65.7716 kg

DRUGS (10)
  1. LUDENS THROAT DROPS WILD CHERRY (PECTIN) [Suspect]
     Indication: COUGH
     Dosage: 3-4 DROPS A DAY AS NEEDED, ORAL
     Route: 048
  2. LUDENS THROAT DROPS WILD CHERRY (PECTIN) [Suspect]
  3. CLOPIDOGREL BISULFATE [Concomitant]
  4. LOVASTATIN [Concomitant]
  5. ATENOLOL [Concomitant]
  6. ASPIRIN [Concomitant]
  7. FISH OIL (FISH OIL) [Concomitant]
  8. PRINZIDE [Concomitant]
  9. OMEPRAZOLE [Concomitant]
  10. NICOTINIC ACID [Concomitant]

REACTIONS (2)
  - BLOOD GLUCOSE INCREASED [None]
  - MYOCARDIAL INFARCTION [None]
